FAERS Safety Report 16325432 (Version 2)
Quarter: 2019Q2

REPORT INFORMATION
  Report Type: Spontaneous
  Country: US (occurrence: US)
  Receive Date: 20190517
  Receipt Date: 20190527
  Transmission Date: 20190711
  Serious: No
  Sender: FDA-Public Use
  Company Number: PHHY2019US113455

PATIENT
  Sex: Female

DRUGS (1)
  1. SYSTANE ULTRA [Suspect]
     Active Substance: POLYETHYLENE GLYCOL 400\PROPYLENE GLYCOL
     Indication: GLAUCOMA
     Route: 047

REACTIONS (4)
  - Eye pain [Recovering/Resolving]
  - Product quality issue [Unknown]
  - Ocular hyperaemia [Recovering/Resolving]
  - Growth of eyelashes [Recovering/Resolving]
